FAERS Safety Report 4274701-2 (Version None)
Quarter: 2004Q1

REPORT INFORMATION
  Report Type: 
  Country: None (occurrence: None)
  Receive Date: 20040115
  Receipt Date: 20040107
  Transmission Date: 20041129
  Serious: Yes (Hospitalization)
  Sender: FDA-Public Use
  Company Number: FR-JNJFOC-20040100640

PATIENT
  Age: 74 Year
  Sex: Male

DRUGS (3)
  1. REMINYL [Suspect]
     Indication: SENILE DEMENTIA
     Dosage: SEE IMAGE
     Route: 048
     Dates: start: 20030601, end: 20030601
  2. REMINYL [Suspect]
     Indication: SENILE DEMENTIA
     Dosage: SEE IMAGE
     Route: 048
     Dates: start: 20021215, end: 20030606
  3. REMINYL [Suspect]
     Indication: SENILE DEMENTIA
     Dosage: SEE IMAGE
     Route: 048
     Dates: start: 20030601

REACTIONS (6)
  - DEMENTIA ALZHEIMER'S TYPE [None]
  - ELECTROENCEPHALOGRAM ABNORMAL [None]
  - EPILEPSY [None]
  - FALL [None]
  - INCONTINENCE [None]
  - MYOCLONUS [None]
